FAERS Safety Report 15675931 (Version 1)
Quarter: 2018Q4

REPORT INFORMATION
  Report Type: Spontaneous
  Country: PE (occurrence: PE)
  Receive Date: 20181130
  Receipt Date: 20181130
  Transmission Date: 20190205
  Serious: Yes (Death, Hospitalization)
  Sender: FDA-Public Use
  Company Number: PE-CELGENEUS-PER-20181108688

PATIENT
  Age: 55 Year
  Sex: Female

DRUGS (10)
  1. TREMELIMUMAB. [Concomitant]
     Active Substance: TREMELIMUMAB
     Indication: NON-SMALL CELL LUNG CANCER
     Dosage: 75 MILLIGRAM
     Route: 042
     Dates: start: 20180820, end: 20180820
  2. ABRAXANE [Suspect]
     Active Substance: PACLITAXEL
     Dosage: 144000 MILLIGRAM/SQ. METER
     Route: 041
     Dates: start: 20180921, end: 20180921
  3. DURVALUMAB. [Concomitant]
     Active Substance: DURVALUMAB
     Indication: NON-SMALL CELL LUNG CANCER
     Route: 042
     Dates: start: 20180921, end: 20180921
  4. TREMELIMUMAB. [Concomitant]
     Active Substance: TREMELIMUMAB
     Indication: NON-SMALL CELL LUNG CANCER
     Dosage: 75 MG
     Route: 042
     Dates: start: 20180921, end: 20180921
  5. CARBOPLATIN. [Concomitant]
     Active Substance: CARBOPLATIN
     Indication: NON-SMALL CELL LUNG CANCER
     Dosage: 5 AUC
     Route: 042
     Dates: start: 20180921, end: 20180921
  6. ABRAXANE [Suspect]
     Active Substance: PACLITAXEL
     Dosage: 144000 MILLIGRAM/SQ. METER
     Route: 041
     Dates: start: 20180829, end: 20180829
  7. ABRAXANE [Suspect]
     Active Substance: PACLITAXEL
     Dosage: 144000 MILLIGRAM/SQ. METER
     Route: 041
     Dates: start: 20180905, end: 20180905
  8. DURVALUMAB. [Concomitant]
     Active Substance: DURVALUMAB
     Indication: NON-SMALL CELL LUNG CANCER
     Dosage: 1500 MILLIGRAM
     Route: 042
     Dates: start: 20180820, end: 20180820
  9. CARBOPLATIN. [Concomitant]
     Active Substance: CARBOPLATIN
     Indication: NON-SMALL CELL LUNG CANCER
     Dosage: 5 AUC
     Route: 042
     Dates: start: 20180820, end: 20180820
  10. ABRAXANE [Suspect]
     Active Substance: PACLITAXEL
     Indication: NON-SMALL CELL LUNG CANCER
     Dosage: 144000 MILLIGRAM/SQ. METER
     Route: 041
     Dates: start: 20180820, end: 20180820

REACTIONS (1)
  - Pneumonia [Fatal]

NARRATIVE: CASE EVENT DATE: 20181111
